FAERS Safety Report 22252892 (Version 2)
Quarter: 2025Q2

REPORT INFORMATION
  Report Type: Spontaneous
  Country: GB (occurrence: GB)
  Receive Date: 20230426
  Receipt Date: 20250619
  Transmission Date: 20250716
  Serious: Yes (Disabling, Other)
  Sender: ORGANON
  Company Number: None

PATIENT
  Sex: Male

DRUGS (4)
  1. PROPECIA [Suspect]
     Active Substance: FINASTERIDE
     Dosage: 1 MG, QD
     Route: 048
     Dates: start: 2000, end: 201110
  2. LYMECYCLINE [Concomitant]
     Active Substance: LYMECYCLINE
  3. PAROXETINE [Concomitant]
     Active Substance: PAROXETINE
  4. VENLAFAXINE HYDROCHLORIDE [Concomitant]
     Active Substance: VENLAFAXINE HYDROCHLORIDE

REACTIONS (22)
  - Connective tissue disorder [Unknown]
  - Sexual dysfunction [Recovered/Resolved]
  - Facial wasting [Not Recovered/Not Resolved]
  - Facial pain [Unknown]
  - Penile size reduced [Not Recovered/Not Resolved]
  - Skin atrophy [Not Recovered/Not Resolved]
  - Skin wrinkling [Not Recovered/Not Resolved]
  - Suicidal ideation [Unknown]
  - Weight decreased [Recovered/Resolved]
  - Withdrawal syndrome [Unknown]
  - Libido decreased [Unknown]
  - Erectile dysfunction [Unknown]
  - Orgasm abnormal [Unknown]
  - Ejaculation disorder [Unknown]
  - Peripheral coldness [Unknown]
  - Eczema [Unknown]
  - Hypoaesthesia [Unknown]
  - Urine flow decreased [Unknown]
  - Memory impairment [Unknown]
  - Cognitive disorder [Unknown]
  - Madarosis [Unknown]
  - Alopecia [Unknown]

NARRATIVE: CASE EVENT DATE: 20070101
